FAERS Safety Report 4954469-4 (Version None)
Quarter: 2006Q1

REPORT INFORMATION
  Report Type: 
  Country: None (occurrence: None)
  Receive Date: 20060327
  Receipt Date: 20060320
  Transmission Date: 20060701
  Serious: Yes (Other)
  Sender: FDA-Public Use
  Company Number: US-BRISTOL-MYERS SQUIBB COMPANY-13320239

PATIENT
  Age: 71 Year
  Sex: Male

DRUGS (8)
  1. GATIFLOXACIN [Suspect]
     Indication: WOUND INFECTION
     Dosage: DOSE REDUCED TO 200 MG/DAILY
     Route: 048
  2. CARVEDILOL [Concomitant]
  3. LISINOPRIL [Concomitant]
  4. DILTIAZEM HCL [Concomitant]
  5. ACETYLSALICYLIC ACID SRT [Concomitant]
  6. HEPARIN [Concomitant]
     Route: 058
  7. SIMVASTATIN [Concomitant]
  8. PIPERAZOLIM + TAZOBACTAM [Concomitant]
     Indication: WOUND INFECTION

REACTIONS (1)
  - HYPERGLYCAEMIA [None]
